FAERS Safety Report 11801769 (Version 1)
Quarter: 2015Q4

REPORT INFORMATION
  Report Type: Spontaneous
  Country: US (occurrence: US)
  Receive Date: 20151204
  Receipt Date: 20151204
  Transmission Date: 20160305
  Serious: No
  Sender: FDA-Public Use
  Company Number: US-JNJFOC-20151120074

PATIENT
  Sex: Male

DRUGS (2)
  1. LUPRON [Concomitant]
     Active Substance: LEUPROLIDE ACETATE
     Route: 065
  2. ZYTIGA [Suspect]
     Active Substance: ABIRATERONE ACETATE
     Indication: PROSTATE CANCER STAGE IV
     Route: 048

REACTIONS (3)
  - Prostatic specific antigen increased [Unknown]
  - Drug ineffective [Unknown]
  - Treatment noncompliance [Unknown]
